FAERS Safety Report 23934194 (Version 5)
Quarter: 2024Q3

REPORT INFORMATION
  Report Type: Spontaneous
  Country: ES (occurrence: ES)
  Receive Date: 20240603
  Receipt Date: 20240808
  Transmission Date: 20241016
  Serious: Yes (Other)
  Sender: ALNYLAM PHARMACEUTICALS
  Company Number: ES-ALNYLAM PHARMACEUTICALS, INC.-ALN-2024-003010

PATIENT

DRUGS (15)
  1. AMVUTTRA [Suspect]
     Active Substance: VUTRISIRAN
     Indication: Hereditary neuropathic amyloidosis
     Dosage: 25 MILLIGRAM
     Route: 058
     Dates: start: 20240226, end: 20240226
  2. AMVUTTRA [Suspect]
     Active Substance: VUTRISIRAN
     Dosage: 25 MILLIGRAM
     Route: 058
     Dates: start: 20240527, end: 20240527
  3. FLUTICASONE FUROATE\VILANTEROL TRIFENATATE [Concomitant]
     Active Substance: FLUTICASONE FUROATE\VILANTEROL TRIFENATATE
     Indication: Asthma
     Dosage: 92 MCG/22MCG, QD
     Route: 065
     Dates: start: 20201205
  4. MONTELUKAST [Concomitant]
     Active Substance: MONTELUKAST SODIUM
     Indication: Asthma
     Dosage: 10 MILLIGRAM, QD
     Route: 065
     Dates: start: 20201204
  5. METFORMIN [Concomitant]
     Active Substance: METFORMIN HYDROCHLORIDE
     Indication: Type 2 diabetes mellitus
     Dosage: 850 MILLIGRAM, QD
     Route: 065
     Dates: start: 20201204
  6. AMLODIPINE [Concomitant]
     Active Substance: AMLODIPINE BESYLATE
     Indication: Hypertension
     Dosage: 5 MILLIGRAM EVERY/12H
     Route: 065
     Dates: start: 20201204
  7. SIMVASTATIN [Concomitant]
     Active Substance: SIMVASTATIN
     Indication: Dyslipidaemia
     Dosage: 20 MILLIGRAM, QD
     Route: 065
     Dates: start: 20201204
  8. FERPLEX [Concomitant]
     Indication: Iron deficiency
     Dosage: UNK
     Route: 065
  9. ESOMEPRAZOLE [Concomitant]
     Active Substance: ESOMEPRAZOLE
     Indication: Gastrooesophageal reflux prophylaxis
     Dosage: 20 MILLIGRAM, BID (EVERY /12 H)
     Route: 065
     Dates: start: 20210114
  10. PROLIA [Concomitant]
     Active Substance: DENOSUMAB
     Indication: Osteoporosis
     Dosage: 60 MILLIGRAM EVERY /6 MONTHS
     Route: 065
     Dates: start: 20210410
  11. VITAMIN A [Concomitant]
     Active Substance: VITAMIN A
     Indication: Supplementation therapy
     Dosage: 50000 INTERNATIONAL UNIT EVERY/15 DAYS
     Route: 065
     Dates: start: 20210209
  12. CALCIFEDIOL [Concomitant]
     Active Substance: CALCIFEDIOL
     Indication: Vitamin supplementation
     Dosage: 0.266 MILLIGRAM, MONTHLY (EVERY 30 DAYS)
     Route: 065
     Dates: start: 20230824
  13. CINACALCET [Concomitant]
     Active Substance: CINACALCET
     Indication: Hyperparathyroidism primary
     Dosage: 30 MILLIGRAM, QD
     Route: 065
     Dates: start: 20230823
  14. CINACALCET [Concomitant]
     Active Substance: CINACALCET
     Indication: Calcium ionised increased
  15. TRYPTIZOL [Concomitant]
     Active Substance: AMITRIPTYLINE HYDROCHLORIDE
     Indication: Neuralgia
     Dosage: 10 MILLIGRAM, QD
     Route: 065
     Dates: start: 20230324

REACTIONS (1)
  - Breast neoplasm [Unknown]
